FAERS Safety Report 12386562 (Version 1)
Quarter: 2016Q2

REPORT INFORMATION
  Report Type: Spontaneous
  Country: FR (occurrence: FR)
  Receive Date: 20160519
  Receipt Date: 20160519
  Transmission Date: 20160815
  Serious: Yes (Other)
  Sender: FDA-Public Use
  Company Number: FR-IGI LABORATORIES, INC.-1052493

PATIENT
  Age: 76 Year
  Sex: Female

DRUGS (1)
  1. FORTAZ [Suspect]
     Active Substance: CEFTAZIDIME SODIUM
     Indication: INFECTION
     Route: 042
     Dates: start: 20160407, end: 20160407

REACTIONS (2)
  - Infusion site extravasation [Recovered/Resolved]
  - Localised oedema [Recovered/Resolved]

NARRATIVE: CASE EVENT DATE: 20160407
